FAERS Safety Report 9865739 (Version 1)
Quarter: 2014Q1

REPORT INFORMATION
  Report Type: Spontaneous
  Country: US (occurrence: US)
  Receive Date: 20140203
  Receipt Date: 20140203
  Transmission Date: 20141002
  Serious: No
  Sender: FDA-Public Use
  Company Number: US-ALLERGAN-1309823US

PATIENT
  Age: 80 Year
  Sex: Female

DRUGS (4)
  1. RESTASIS [Suspect]
     Indication: DRY EYE
     Dosage: 2 GTT, BID
     Route: 047
     Dates: end: 20130628
  2. RESTASIS [Suspect]
     Indication: BLEPHARITIS
  3. THERATEARS [Concomitant]
     Indication: DRY EYE
     Dosage: UNK UNK, PRN
     Route: 047
  4. GENTEAL GEL TWIN PACK [Concomitant]
     Indication: DRY EYE
     Route: 047

REACTIONS (4)
  - Erythema [Not Recovered/Not Resolved]
  - Off label use [Unknown]
  - Skin irritation [Not Recovered/Not Resolved]
  - Ocular hyperaemia [Recovering/Resolving]
